FAERS Safety Report 12442648 (Version 1)
Quarter: 2016Q2

REPORT INFORMATION
  Report Type: Spontaneous
  Country: US (occurrence: None)
  Receive Date: 20160606
  Receipt Date: 20160606
  Transmission Date: 20160815
  Serious: Yes (Disabling, Other)
  Sender: FDA-Public Use
  Company Number: None

PATIENT
  Age: 33 Year
  Sex: Female
  Weight: 74.84 kg

DRUGS (2)
  1. LEVOTHYROXINE. [Concomitant]
     Active Substance: LEVOTHYROXINE
  2. CIPROFLOXACIN. [Suspect]
     Active Substance: CIPROFLOXACIN
     Indication: LOCALISED INFECTION
     Route: 048
     Dates: start: 20160427, end: 20160505

REACTIONS (6)
  - Arthralgia [None]
  - Pain in jaw [None]
  - Joint swelling [None]
  - Joint stiffness [None]
  - Back pain [None]
  - Tendonitis [None]

NARRATIVE: CASE EVENT DATE: 20160506
